FAERS Safety Report 7329685-7 (Version None)
Quarter: 2011Q1

REPORT INFORMATION
  Report Type: 
  Country: None (occurrence: None)
  Receive Date: 20110223
  Receipt Date: 20110207
  Transmission Date: 20110831
  Serious: Yes (Other)
  Sender: FDA-Public Use
  Company Number: 1000017810

PATIENT
  Age: 80 Year
  Sex: Female

DRUGS (11)
  1. IDALPREM (LORAZEPAM) (TABLETS) [Suspect]
     Dosage: 5 MG (5 MG, 1 IN 1 D), ORAL
     Route: 048
  2. ESERTIA (ESCITALOPRAM) (TABLETS) (ESCITALOPRAM) [Concomitant]
  3. ACTONEL (RISEDRONATE SODIUM) (RISEDRONATE SODIUM) [Concomitant]
  4. MEMANTINE [Suspect]
     Indication: DEMENTIA ALZHEIMER'S TYPE
     Dosage: (20 MG (20 MG, 1 IN 1 D), ORAL) (5 MG (5 MG, 1 IN 1 D), ORAL) (10 MG (10 MG, 1 IN 1 D), ORAL) (15 MG
     Route: 048
     Dates: start: 20101101, end: 20101209
  5. MEMANTINE [Suspect]
     Indication: DEMENTIA ALZHEIMER'S TYPE
     Dosage: (20 MG (20 MG, 1 IN 1 D), ORAL) (5 MG (5 MG, 1 IN 1 D), ORAL) (10 MG (10 MG, 1 IN 1 D), ORAL) (15 MG
     Route: 048
     Dates: start: 20101201
  6. MEMANTINE [Suspect]
     Indication: DEMENTIA ALZHEIMER'S TYPE
     Dosage: (20 MG (20 MG, 1 IN 1 D), ORAL) (5 MG (5 MG, 1 IN 1 D), ORAL) (10 MG (10 MG, 1 IN 1 D), ORAL) (15 MG
     Route: 048
     Dates: start: 20101101, end: 20101101
  7. MEMANTINE [Suspect]
     Indication: DEMENTIA ALZHEIMER'S TYPE
     Dosage: (20 MG (20 MG, 1 IN 1 D), ORAL) (5 MG (5 MG, 1 IN 1 D), ORAL) (10 MG (10 MG, 1 IN 1 D), ORAL) (15 MG
     Route: 048
     Dates: start: 20101101, end: 20101101
  8. MEMANTINE [Suspect]
     Indication: DEMENTIA ALZHEIMER'S TYPE
     Dosage: (20 MG (20 MG, 1 IN 1 D), ORAL) (5 MG (5 MG, 1 IN 1 D), ORAL) (10 MG (10 MG, 1 IN 1 D), ORAL) (15 MG
     Route: 048
     Dates: start: 20101101, end: 20101101
  9. PLACINORAL (LORAZEPAM) (TABLETS) [Suspect]
     Dosage: 2 MG (2 MG, 1 IN 1 D), ORAL
     Route: 048
  10. METFORMIN (METFORMIN) 435 MILLIGRAM, TABLETS) (METFORMIN) [Concomitant]
  11. TRIPTIZOL (AMITRIPTYLINE HYDROCHLORIDE) (TABLETS) (AMITRIPTYLINE HYDRO [Concomitant]

REACTIONS (3)
  - ABASIA [None]
  - HYPOTONIA [None]
  - APHASIA [None]
